FAERS Safety Report 9269691 (Version 2)
Quarter: 2013Q2

REPORT INFORMATION
  Report Type: Spontaneous
  Country: US (occurrence: US)
  Receive Date: 20130503
  Receipt Date: 20130528
  Transmission Date: 20140414
  Serious: No
  Sender: FDA-Public Use
  Company Number: US-009507513-1305USA001458

PATIENT
  Age: 37 Year
  Sex: Male
  Weight: 123.81 kg

DRUGS (2)
  1. CLARITIN-D 24 HOUR [Suspect]
     Indication: NASAL CONGESTION
     Dosage: UNK, QD
     Route: 048
     Dates: start: 20130403, end: 20130417
  2. CLARITIN-D 24 HOUR [Suspect]
     Indication: MEDICAL OBSERVATION

REACTIONS (1)
  - Drug ineffective [Unknown]
